FAERS Safety Report 8646035 (Version 6)
Quarter: 2013Q2

REPORT INFORMATION
  Report Type: Spontaneous
  Country: US (occurrence: US)
  Receive Date: 20120702
  Receipt Date: 20130409
  Transmission Date: 20140414
  Serious: Yes (Hospitalization, Disabling, Other)
  Sender: FDA-Public Use
  Company Number: US-009507513-1206USA04860

PATIENT
  Sex: Female
  Weight: 124.72 kg

DRUGS (5)
  1. FOSAMAX [Suspect]
     Indication: OSTEOPOROSIS
     Dosage: 70 MG, QW
     Route: 048
     Dates: start: 20031009, end: 20080122
  2. FOSAMAX [Suspect]
     Indication: OSTEOPOROSIS
     Dosage: 70 MG, UNK
     Route: 048
  3. FLOVENT [Concomitant]
     Dosage: UNK
  4. ATROVENT [Concomitant]
  5. ALENDRONATE SODIUM [Suspect]
     Dosage: 70 MG, UNK

REACTIONS (45)
  - Femur fracture [Unknown]
  - External fixation of fracture [Unknown]
  - Internal fixation of fracture [Unknown]
  - Open reduction of fracture [Unknown]
  - Osteoporosis [Unknown]
  - Stress fracture [Unknown]
  - Femur fracture [Unknown]
  - Low turnover osteopathy [Unknown]
  - Myocardial infarction [Unknown]
  - Myocardial infarction [Unknown]
  - Spleen operation [Unknown]
  - Renal failure chronic [Not Recovered/Not Resolved]
  - Ankle fracture [Recovered/Resolved]
  - Chronic obstructive pulmonary disease [Not Recovered/Not Resolved]
  - Chronic obstructive pulmonary disease [Not Recovered/Not Resolved]
  - Cardiac failure congestive [Unknown]
  - Hyperhidrosis [Unknown]
  - Coronary artery disease [Unknown]
  - Ischaemic cardiomyopathy [Unknown]
  - Cardiac asthma [Unknown]
  - Peripheral vascular disorder [Unknown]
  - Tricuspid valve incompetence [Unknown]
  - Dilatation ventricular [Unknown]
  - Ventricular hypokinesia [Unknown]
  - Ejection fraction decreased [Unknown]
  - Corneal degeneration [Unknown]
  - Cataract [Unknown]
  - Arthroscopy [Unknown]
  - Arthroscopy [Unknown]
  - Knee operation [Unknown]
  - Diabetes mellitus [Unknown]
  - Gout [Unknown]
  - Blister [Unknown]
  - Cataract operation [Unknown]
  - Urinary tract infection [Unknown]
  - Procedural hypotension [Unknown]
  - Hyperkalaemia [Unknown]
  - Hypertension [Unknown]
  - Blood cholesterol increased [Unknown]
  - Asthma [Unknown]
  - Hypercalcaemia [Unknown]
  - Muscle spasms [Unknown]
  - Drug ineffective [Unknown]
  - Oedema peripheral [Unknown]
  - Back pain [Unknown]
